FAERS Safety Report 6312093-5 (Version None)
Quarter: 2009Q3

REPORT INFORMATION
  Report Type: 
  Country: None (occurrence: None)
  Receive Date: 20090817
  Receipt Date: 20090813
  Transmission Date: 20100115
  Serious: Yes (Life-Threatening, Hospitalization, Other)
  Sender: FDA-Public Use
  Company Number: NL-ASTRAZENECA-2009SE08055

PATIENT
  Age: 17146 Day
  Sex: Female
  Weight: 78 kg

DRUGS (9)
  1. SEROQUEL XR [Suspect]
     Indication: ANXIETY DISORDER
     Route: 048
     Dates: start: 20090115, end: 20090209
  2. SELEGILINE HCL SANDOZ [Interacting]
     Indication: PARKINSON'S DISEASE
     Route: 048
  3. SINEMET [Concomitant]
     Dosage: 100/25 MG, 2 DF SIX TIMES A DAY
     Route: 048
     Dates: start: 20021103
  4. SINEMET [Concomitant]
     Dosage: 200/50 MG, 1 DF DAILY
     Route: 048
     Dates: start: 20040101
  5. METOCLOPRAMIDE HCL PCH [Concomitant]
     Route: 048
     Dates: start: 20050101
  6. NIFEDIPINE [Concomitant]
     Route: 048
     Dates: start: 20050101
  7. YASMIN [Concomitant]
     Dosage: CYCLICAL
     Route: 048
     Dates: start: 20070101
  8. OMEPRAZOL [Concomitant]
     Route: 048
     Dates: start: 20030101
  9. SYMMETREL [Concomitant]
     Route: 048

REACTIONS (5)
  - AGITATION [None]
  - AKATHISIA [None]
  - DRUG INTERACTION [None]
  - HYPERTONIA [None]
  - SUICIDAL IDEATION [None]
